FAERS Safety Report 9513892 (Version 1)
Quarter: 2013Q3

REPORT INFORMATION
  Report Type: Spontaneous
  Country: FR (occurrence: FR)
  Receive Date: 20130910
  Receipt Date: 20130910
  Transmission Date: 20140515
  Serious: Yes (Hospitalization)
  Sender: FDA-Public Use
  Company Number: FR-ROCHE-1272049

PATIENT
  Age: 84 Year
  Sex: Female

DRUGS (12)
  1. ROCEPHINE [Suspect]
     Indication: ERYSIPELAS
     Route: 051
     Dates: start: 20120611, end: 20120615
  2. PYOSTACINE [Suspect]
     Indication: ERYSIPELAS
     Route: 065
     Dates: start: 20120622, end: 20120627
  3. AMOXICILLINE [Suspect]
     Indication: ERYSIPELAS
     Route: 048
     Dates: start: 20120627, end: 20120706
  4. LIPANTHYL [Concomitant]
  5. SINGULAIR [Concomitant]
  6. SYMBICORT [Concomitant]
  7. DAFALGAN [Concomitant]
  8. OMEPRAZOLE [Concomitant]
  9. VENLAFAXINE [Concomitant]
  10. LORAZEPAM [Concomitant]
  11. CAPTOPRIL/HYDROCHLOROTHIAZIDE [Concomitant]
  12. RILMENIDINE [Concomitant]

REACTIONS (1)
  - Drug eruption [Recovered/Resolved]
